FAERS Safety Report 7151388-2 (Version None)
Quarter: 2010Q4

REPORT INFORMATION
  Report Type: 
  Country: None (occurrence: None)
  Receive Date: 20101210
  Receipt Date: 20101130
  Transmission Date: 20110411
  Serious: Yes (Congenital Anomaly)
  Sender: FDA-Public Use
  Company Number: GXKR2010GB13574

PATIENT
  Sex: Female
  Weight: 3.2 kg

DRUGS (5)
  1. VENLAFAXINE [Suspect]
     Route: 064
  2. CAMPRAL [Suspect]
     Dosage: UNK
     Route: 064
     Dates: start: 20100301, end: 20100701
  3. PROPRANOLOL [Suspect]
     Route: 064
  4. THIAMINE [Suspect]
     Dosage: MATERNAL DOSE: 200 MG/DAY
     Route: 064
     Dates: start: 20100301
  5. VITAMIN B [Suspect]
     Dosage: MATERNAL DOSE: 1 DF BID
     Route: 064
     Dates: start: 20100301

REACTIONS (3)
  - DRUG EXPOSURE DURING PREGNANCY [None]
  - FOETAL ALCOHOL SYNDROME [None]
  - MATERNAL DRUGS AFFECTING FOETUS [None]
